FAERS Safety Report 9697413 (Version 1)
Quarter: 2013Q4

REPORT INFORMATION
  Report Type: Spontaneous
  Country: US (occurrence: None)
  Receive Date: 20131119
  Receipt Date: 20131119
  Transmission Date: 20140711
  Serious: Yes (Other)
  Sender: FDA-Public Use
  Company Number: None

PATIENT
  Age: 33 Year
  Sex: Female
  Weight: 55.34 kg

DRUGS (1)
  1. LYRICA [Suspect]
     Indication: HEADACHE
     Route: 048

REACTIONS (3)
  - Anxiety [None]
  - Feeling abnormal [None]
  - Depression [None]
